FAERS Safety Report 8713529 (Version 2)
Quarter: 2012Q4

REPORT INFORMATION
  Report Type: 
  Country: US (occurrence: US)
  Receive Date: 20120808
  Receipt Date: 20120831
  Transmission Date: 20130627
  Serious: Yes (Other)
  Sender: FDA-Public Use
  Company Number: US-TEVA-351648USA

PATIENT
  Age: 50 Year
  Sex: Female
  Weight: 113.5 kg

DRUGS (4)
  1. COPAXONE [Suspect]
     Indication: MULTIPLE SCLEROSIS
     Dosage: 20 Milligram Daily;
     Route: 058
  2. CYMBALTA [Concomitant]
  3. ALPRAZOLAM [Concomitant]
  4. VITAMIN D [Concomitant]

REACTIONS (4)
  - Pharyngeal oedema [Recovered/Resolved]
  - Throat tightness [Recovered/Resolved]
  - Palpitations [Recovered/Resolved]
  - Fear [Recovered/Resolved]
